FAERS Safety Report 9140359 (Version 1)
Quarter: 2013Q1

REPORT INFORMATION
  Report Type: Spontaneous
  Country: JP (occurrence: JP)
  Receive Date: 20130305
  Receipt Date: 20130305
  Transmission Date: 20140127
  Serious: Yes (Other)
  Sender: FDA-Public Use
  Company Number: JP-B.I. PHARMACEUTICALS,INC./RIDGEFIELD-2013-BI-06006YA

PATIENT
  Sex: Male

DRUGS (2)
  1. HARNAL [Suspect]
     Route: 048
  2. ALPHA-1 BLOCKER [Concomitant]

REACTIONS (1)
  - Eye operation [Unknown]
